FAERS Safety Report 6277747-8 (Version None)
Quarter: 2009Q3

REPORT INFORMATION
  Report Type: 
  Country: None (occurrence: None)
  Receive Date: 20090722
  Receipt Date: 20090714
  Transmission Date: 20100115
  Serious: Yes (Hospitalization)
  Sender: FDA-Public Use
  Company Number: B0582634A

PATIENT
  Age: 65 Year
  Sex: Female
  Weight: 50.6 kg

DRUGS (4)
  1. AMOXIL [Suspect]
     Indication: BRONCHITIS
     Route: 065
     Dates: start: 20090630
  2. SERETIDE [Concomitant]
     Route: 065
  3. VENTOLIN [Concomitant]
     Route: 065
  4. PENICILLIN [Concomitant]

REACTIONS (15)
  - ANAPHYLACTIC REACTION [None]
  - ANGIOEDEMA [None]
  - BRONCHOSPASM [None]
  - CIRCULATORY COLLAPSE [None]
  - DERMATITIS CONTACT [None]
  - DIARRHOEA [None]
  - DIZZINESS [None]
  - FACE OEDEMA [None]
  - HYPERSENSITIVITY [None]
  - HYPOTENSION [None]
  - LARYNGEAL OEDEMA [None]
  - NAUSEA [None]
  - RASH [None]
  - URTICARIA [None]
  - VOMITING [None]
